FAERS Safety Report 5723222-6 (Version None)
Quarter: 2008Q2

REPORT INFORMATION
  Report Type: 
  Country: None (occurrence: None)
  Receive Date: 20080430
  Receipt Date: 20080428
  Transmission Date: 20081010
  Serious: Yes (Death, Hospitalization)
  Sender: FDA-Public Use
  Company Number: FR-BRISTOL-MYERS SQUIBB COMPANY-14169007

PATIENT
  Age: 51 Year
  Sex: Male

DRUGS (1)
  1. APROVEL TABS 150 MG [Suspect]
     Indication: HYPERTENSION
     Dosage: DURATION OF THERAPY-4-6 YEARS.

REACTIONS (1)
  - HAEMORRHAGIC STROKE [None]
